FAERS Safety Report 13454498 (Version 6)
Quarter: 2017Q4

REPORT INFORMATION
  Report Type: Report from Study
  Country: US (occurrence: US)
  Receive Date: 20170418
  Receipt Date: 20171117
  Transmission Date: 20180320
  Serious: Yes (Other)
  Sender: FDA-Public Use
  Company Number: US-JAZZ-2017-US-004289

PATIENT
  Age: 34 Year
  Sex: Female

DRUGS (9)
  1. XYREM [Suspect]
     Active Substance: SODIUM OXYBATE
     Dosage: 4.25 G, BID
     Route: 048
  2. XYREM [Suspect]
     Active Substance: SODIUM OXYBATE
     Dosage: 4 G, BID
     Route: 048
     Dates: start: 2017
  3. FISH OIL CONCENTRATE [Concomitant]
     Active Substance: FISH OIL
  4. XYREM [Suspect]
     Active Substance: SODIUM OXYBATE
     Dosage: 4 G, BID
     Route: 048
  5. BROMFED [Suspect]
     Active Substance: BROMPHENIRAMINE MALEATE\DEXTROMETHORPHAN HYDROBROMIDE\PSEUDOEPHEDRINE HYDROCHLORIDE
     Indication: SINUSITIS
  6. XYREM [Suspect]
     Active Substance: SODIUM OXYBATE
     Dosage: DOSE ADJUSTMENT
     Route: 048
     Dates: start: 201603, end: 2017
  7. NUVIGIL [Concomitant]
     Active Substance: ARMODAFINIL
  8. ABILIFY [Concomitant]
     Active Substance: ARIPIPRAZOLE
  9. XYREM [Suspect]
     Active Substance: SODIUM OXYBATE
     Indication: NARCOLEPSY
     Dosage: 2.25 G, BID
     Route: 048
     Dates: start: 201603, end: 201603

REACTIONS (8)
  - Feeling abnormal [Unknown]
  - Hypersensitivity [Not Recovered/Not Resolved]
  - Dyspnoea [Unknown]
  - Feeling of body temperature change [Unknown]
  - Hyperhidrosis [Unknown]
  - Viral upper respiratory tract infection [Unknown]
  - Drug interaction [Unknown]
  - Sinusitis bacterial [Not Recovered/Not Resolved]

NARRATIVE: CASE EVENT DATE: 201703
